FAERS Safety Report 6587456-3 (Version None)
Quarter: 2010Q1

REPORT INFORMATION
  Report Type: 
  Country: None (occurrence: None)
  Receive Date: 20100217
  Receipt Date: 20090529
  Transmission Date: 20100710
  Serious: No
  Sender: FDA-Public Use
  Company Number: US-ALLERGAN-0907611US

PATIENT
  Age: 42 Year
  Sex: Female

DRUGS (4)
  1. BOTOX COSMETIC [Suspect]
     Indication: SKIN WRINKLING
     Dosage: 20 UNITS, SINGLE
     Route: 030
     Dates: start: 20090401, end: 20090401
  2. VITAMINS [Concomitant]
  3. ADVIL [Concomitant]
  4. LUNESTA [Concomitant]
     Indication: SLEEP DISORDER THERAPY

REACTIONS (1)
  - MUSCLE SPASMS [None]
